FAERS Safety Report 8964857 (Version 4)
Quarter: 2013Q3

REPORT INFORMATION
  Report Type: Report from Study
  Country: AU (occurrence: AU)
  Receive Date: 20121213
  Receipt Date: 20130718
  Transmission Date: 20140515
  Serious: Yes (Hospitalization)
  Sender: FDA-Public Use
  Company Number: AU-ROCHE-1164680

PATIENT
  Age: 45 Year
  Sex: Female

DRUGS (16)
  1. PEG-INTERFERON ALFA 2A [Suspect]
     Indication: CHRONIC HEPATITIS C
     Route: 058
     Dates: start: 20120829
  2. TELAPREVIR [Suspect]
     Indication: CHRONIC HEPATITIS C
     Route: 048
     Dates: start: 20120829
  3. RIBAVIRIN [Suspect]
     Indication: CHRONIC HEPATITIS C
     Route: 048
     Dates: start: 20120829
  4. SCHERIPROCT (AUSTRALIA) [Concomitant]
     Route: 065
     Dates: start: 20120912, end: 20121101
  5. ALPRAZOLAM [Concomitant]
     Route: 065
     Dates: start: 20120925, end: 20121031
  6. ADVANTAN [Concomitant]
     Route: 065
     Dates: start: 20120925
  7. BETAMETHASONE VALERATE/GENTAMICIN SULFATE [Concomitant]
  8. METHYLPREDNISOLONE [Concomitant]
     Route: 061
  9. RISPERDAL [Concomitant]
     Route: 065
     Dates: start: 20120925, end: 20121110
  10. RETACRIT [Concomitant]
     Route: 065
     Dates: start: 20121015, end: 20121107
  11. UNASYN (SULTAMICILLIN) [Concomitant]
     Route: 065
     Dates: end: 20121030
  12. ZYPREXA [Concomitant]
     Route: 065
     Dates: start: 20121110
  13. VOLUVEN [Concomitant]
  14. PASPERTIN [Concomitant]
  15. PANTOLOC [Concomitant]
  16. MYCOSTATIN [Concomitant]

REACTIONS (6)
  - Hypotension [Unknown]
  - Nausea [Unknown]
  - Vomiting [Unknown]
  - Panic disorder [Recovered/Resolved]
  - Circulatory collapse [Recovered/Resolved]
  - Gastrointestinal haemorrhage [Recovered/Resolved]
